FAERS Safety Report 7387749-6 (Version None)
Quarter: 2011Q1

REPORT INFORMATION
  Report Type: 
  Country: None (occurrence: None)
  Receive Date: 20110331
  Receipt Date: 20110330
  Transmission Date: 20110831
  Serious: Yes (Life-Threatening, Hospitalization)
  Sender: FDA-Public Use
  Company Number: FR-ABBOTT-11P-056-0715280-00

PATIENT
  Age: 47 Year
  Sex: Male

DRUGS (7)
  1. CLOZAPINE [Suspect]
     Indication: MULTIPLE DRUG OVERDOSE INTENTIONAL
     Route: 048
     Dates: end: 20110103
  2. VALIUM [Suspect]
     Indication: MULTIPLE DRUG OVERDOSE INTENTIONAL
     Route: 048
     Dates: end: 20110103
  3. ZYPREXA [Suspect]
     Indication: MULTIPLE DRUG OVERDOSE INTENTIONAL
     Route: 048
     Dates: end: 20110103
  4. ABILIFY [Suspect]
     Indication: MULTIPLE DRUG OVERDOSE INTENTIONAL
     Route: 048
     Dates: end: 20110103
  5. CYAMEMAZINE [Suspect]
     Indication: MULTIPLE DRUG OVERDOSE INTENTIONAL
  6. LEXOMIL [Suspect]
     Indication: MULTIPLE DRUG OVERDOSE INTENTIONAL
     Route: 048
     Dates: end: 20110103
  7. DEPAKOTE [Suspect]
     Indication: MULTIPLE DRUG OVERDOSE INTENTIONAL
     Route: 048
     Dates: end: 20110103

REACTIONS (7)
  - METABOLIC ACIDOSIS [None]
  - MULTIPLE DRUG OVERDOSE INTENTIONAL [None]
  - HYPOVOLAEMIC SHOCK [None]
  - DIABETES INSIPIDUS [None]
  - POLYURIA [None]
  - COMA [None]
  - PANCYTOPENIA [None]
